FAERS Safety Report 12713714 (Version 1)
Quarter: 2016Q3

REPORT INFORMATION
  Report Type: Spontaneous
  Country: NL (occurrence: NL)
  Receive Date: 20160904
  Receipt Date: 20160904
  Transmission Date: 20161109
  Serious: Yes (Other)
  Sender: FDA-Public Use
  Company Number: NL-TEVA-688635ACC

PATIENT
  Age: 30 Year
  Sex: Female
  Weight: 80 kg

DRUGS (2)
  1. ARIPIPRAZOLE TABLET 10MG [Suspect]
     Active Substance: ARIPIPRAZOLE
     Indication: AGITATION
     Dosage: 10 MILLIGRAM DAILY; 1 TIME DAILY ONE PIECE
     Route: 048
     Dates: start: 20160813
  2. TRAMADOL CAPSULE MGA  50MG [Concomitant]
     Dosage: 150 MILLIGRAM DAILY; IF NECESSARY, MAXIMUM 3 TIMES DAILY
     Route: 048
     Dates: start: 20160812, end: 20160814

REACTIONS (11)
  - Suicidal ideation [Recovered/Resolved]
  - Hyperhidrosis [Recovered/Resolved]
  - Insomnia [Recovered/Resolved]
  - Headache [Recovered/Resolved]
  - Blood pressure systolic increased [Recovered/Resolved]
  - Agitation [Recovered/Resolved]
  - Vomiting [Recovered/Resolved]
  - Personality disorder [Recovered/Resolved]
  - Anxiety [Recovered/Resolved]
  - Nausea [Recovered/Resolved]
  - Hiccups [Recovered/Resolved]

NARRATIVE: CASE EVENT DATE: 20160813
